FAERS Safety Report 24413636 (Version 2)
Quarter: 2025Q2

REPORT INFORMATION
  Report Type: Spontaneous
  Country: US (occurrence: US)
  Receive Date: 20241008
  Receipt Date: 20250425
  Transmission Date: 20250717
  Serious: Yes (Other)
  Sender: BIOGEN
  Company Number: US-BIOGEN-2024BI01243548

PATIENT
  Sex: Female

DRUGS (4)
  1. SKYCLARYS [Suspect]
     Active Substance: OMAVELOXOLONE
     Indication: Friedreich^s ataxia
     Route: 050
     Dates: start: 20230929
  2. SKYCLARYS [Suspect]
     Active Substance: OMAVELOXOLONE
     Route: 050
     Dates: start: 20230929
  3. SKYCLARYS [Suspect]
     Active Substance: OMAVELOXOLONE
     Route: 050
     Dates: start: 20230929
  4. SKYCLARYS [Suspect]
     Active Substance: OMAVELOXOLONE
     Route: 050
     Dates: start: 20230929

REACTIONS (21)
  - Monogenic diabetes [Unknown]
  - Anuria [Unknown]
  - Nasopharyngitis [Unknown]
  - Lip dry [Unknown]
  - Yellow skin [Unknown]
  - Product dose omission issue [Unknown]
  - Pain [Unknown]
  - Loss of consciousness [Unknown]
  - Blood creatinine increased [Unknown]
  - Blood creatinine decreased [Unknown]
  - Haemoglobin decreased [Unknown]
  - Haematocrit decreased [Unknown]
  - Mean cell haemoglobin decreased [Unknown]
  - Investigation abnormal [Unknown]
  - Investigation abnormal [Unknown]
  - Muscle tightness [Unknown]
  - Contusion [Unknown]
  - Joint injury [Unknown]
  - Decreased appetite [Unknown]
  - Abdominal pain lower [Recovered/Resolved]
  - Fatigue [Unknown]

NARRATIVE: CASE EVENT DATE: 20230101
